FAERS Safety Report 5481003-5 (Version None)
Quarter: 2007Q4

REPORT INFORMATION
  Report Type: 
  Country: None (occurrence: None)
  Receive Date: 20071009
  Receipt Date: 20070928
  Transmission Date: 20080405
  Serious: Yes (Hospitalization)
  Sender: FDA-Public Use
  Company Number: CA-PFIZER INC-2007076215

PATIENT
  Age: 68 Year
  Sex: Female
  Weight: 55 kg

DRUGS (1)
  1. SU-011,248 [Suspect]
     Indication: ENDOMETRIAL CANCER
     Dosage: DAILY DOSE:50MG-FREQ:CYCLIC: 4 WEEKS ON AND 2 WEEKS OFF
     Route: 048
     Dates: start: 20070716, end: 20070813

REACTIONS (3)
  - ABDOMINAL PAIN [None]
  - CONFUSIONAL STATE [None]
  - HYPONATRAEMIA [None]
